FAERS Safety Report 6505773-X (Version None)
Quarter: 2009Q4

REPORT INFORMATION
  Report Type: 
  Country: None (occurrence: None)
  Receive Date: 20091218
  Receipt Date: 20091207
  Transmission Date: 20100525
  Serious: Yes (Hospitalization)
  Sender: FDA-Public Use
  Company Number: PL-JNJFOC-20090503813

PATIENT
  Sex: Female
  Weight: 46.5 kg

DRUGS (7)
  1. GOLIMUMAB [Suspect]
     Route: 058
  2. GOLIMUMAB [Suspect]
     Indication: COLITIS ULCERATIVE
     Route: 058
  3. MESALAZIN [Concomitant]
     Indication: COLITIS ULCERATIVE
  4. MEBEVERINE [Concomitant]
     Indication: COLITIS ULCERATIVE
     Route: 048
  5. ISONIAZID [Concomitant]
     Indication: ANTIBIOTIC PROPHYLAXIS
     Route: 048
  6. VITAMIN B6 [Concomitant]
     Indication: ANTIBIOTIC PROPHYLAXIS
     Route: 048
  7. ORTHO EVRA [Concomitant]
     Route: 062

REACTIONS (1)
  - DEHYDRATION [None]
